FAERS Safety Report 24593609 (Version 1)
Quarter: 2024Q4

REPORT INFORMATION
  Report Type: Spontaneous
  Country: US (occurrence: US)
  Receive Date: 20241108
  Receipt Date: 20241108
  Transmission Date: 20250114
  Serious: No
  Sender: MERZ
  Company Number: US-Merz Pharmaceuticals GmbH-2024100000186

PATIENT

DRUGS (1)
  1. XEOMIN [Suspect]
     Active Substance: INCOBOTULINUMTOXINA
     Indication: Product used for unknown indication
     Dates: start: 202410, end: 202410

REACTIONS (3)
  - Vomiting [Unknown]
  - Visual impairment [Unknown]
  - Dysphagia [Unknown]

NARRATIVE: CASE EVENT DATE: 20241001
